FAERS Safety Report 13704407 (Version 1)
Quarter: 2017Q2

REPORT INFORMATION
  Report Type: Spontaneous
  Country: US (occurrence: US)
  Receive Date: 20170629
  Receipt Date: 20170629
  Transmission Date: 20170830
  Serious: Yes (Other)
  Sender: FDA-Public Use
  Company Number: None

PATIENT
  Age: 72 Year
  Sex: Female
  Weight: 81 kg

DRUGS (1)
  1. ROCURONIUM BROMIDE. [Suspect]
     Active Substance: ROCURONIUM BROMIDE
     Dosage: ?          OTHER DOSE:MG;OTHER FREQUENCY:ONCE;?
     Route: 042
     Dates: start: 20170628, end: 20170628

REACTIONS (2)
  - Drug ineffective [None]
  - Muscle twitching [None]

NARRATIVE: CASE EVENT DATE: 20170628
